FAERS Safety Report 16246920 (Version 2)
Quarter: 2020Q1

REPORT INFORMATION
  Report Type: Other
  Country: CA (occurrence: CA)
  Receive Date: 20190427
  Receipt Date: 20200103
  Transmission Date: 20200409
  Serious: Yes (Other)
  Sender: FDA-Public Use
  Company Number: CA-APOTEX-2019AP012289

PATIENT
  Age: 21 Year
  Sex: Female

DRUGS (2)
  1. HYDROMORPHONE [Suspect]
     Active Substance: HYDROMORPHONE
     Indication: DRUG DEPENDENCE
     Dosage: UNK
     Route: 065
  2. FENTANYL. [Suspect]
     Active Substance: FENTANYL
     Indication: DRUG DEPENDENCE
     Dosage: UNK
     Route: 065

REACTIONS (3)
  - Drug abuse [Unknown]
  - Maternal exposure during pregnancy [Unknown]
  - Product use in unapproved indication [Unknown]
